FAERS Safety Report 7364252-0 (Version None)
Quarter: 2011Q1

REPORT INFORMATION
  Report Type: 
  Country: None (occurrence: None)
  Receive Date: 20110321
  Receipt Date: 20110315
  Transmission Date: 20110831
  Serious: Yes (Other)
  Sender: FDA-Public Use
  Company Number: A0918305A

PATIENT
  Sex: Female

DRUGS (2)
  1. ADVAIR DISKUS 100/50 [Suspect]
     Indication: ASTHMA
     Dosage: 1PUFF TWICE PER DAY
     Route: 055
     Dates: end: 20110314
  2. BENADRYL [Concomitant]

REACTIONS (7)
  - LIP SWELLING [None]
  - ASTHMA [None]
  - DRY MOUTH [None]
  - TREATMENT NONCOMPLIANCE [None]
  - DRUG INEFFECTIVE [None]
  - URTICARIA [None]
  - CONDITION AGGRAVATED [None]
